FAERS Safety Report 8163040-5 (Version None)
Quarter: 2012Q1

REPORT INFORMATION
  Report Type: 
  Country: None (occurrence: None)
  Receive Date: 20120224
  Receipt Date: 20120215
  Transmission Date: 20120608
  Serious: No
  Sender: FDA-Public Use
  Company Number: US-B.I. PHARMACEUTICALS,INC./RIDGEFIELD-2012-BP-02992BP

PATIENT
  Sex: Female

DRUGS (17)
  1. ARDEN PLUS [Concomitant]
     Route: 048
  2. TOPAMAX [Concomitant]
     Dosage: 300 NR
     Route: 048
  3. AMBIEN CR [Concomitant]
     Dosage: 12.5 MG
     Route: 048
  4. CALCIUM + D [Concomitant]
     Route: 048
  5. LOVENOX [Concomitant]
     Dosage: 120 MG
     Route: 058
  6. LORTAB [Concomitant]
     Route: 048
  7. PROGESTERONE [Concomitant]
     Route: 061
  8. CARAFATE [Concomitant]
     Dosage: 1 G
     Route: 048
  9. DEXILANT [Concomitant]
     Dosage: 60 MG
     Route: 048
  10. CYMBALTA [Concomitant]
     Dosage: 60 MG
     Route: 048
  11. PHENERGAN [Concomitant]
     Route: 048
  12. LEVSIN [Concomitant]
     Route: 048
  13. SOMA [Concomitant]
     Route: 048
  14. IMITREX [Concomitant]
     Route: 048
  15. VESICARE [Concomitant]
     Dosage: 10 MG
     Route: 048
  16. PRADAXA [Suspect]
     Indication: DEEP VEIN THROMBOSIS
  17. IMIPRAMINE [Concomitant]
     Dosage: 25 MG
     Route: 048

REACTIONS (1)
  - ALOPECIA [None]
